FAERS Safety Report 24752157 (Version 4)
Quarter: 2025Q1

REPORT INFORMATION
  Report Type: Report from Study
  Country: US (occurrence: US)
  Receive Date: 20241219
  Receipt Date: 20250224
  Transmission Date: 20250409
  Serious: Yes (Hospitalization)
  Sender: NOVARTIS
  Company Number: US-002147023-NVSC2024US240807

PATIENT
  Sex: Female

DRUGS (1)
  1. KESIMPTA [Suspect]
     Active Substance: OFATUMUMAB
     Indication: Product used for unknown indication
     Route: 058

REACTIONS (6)
  - Cystitis [Unknown]
  - Drug ineffective [Unknown]
  - Illness [Unknown]
  - Infection [Unknown]
  - Feeling abnormal [Unknown]
  - Adverse drug reaction [Unknown]
